FAERS Safety Report 10021825 (Version 4)
Quarter: 2015Q2

REPORT INFORMATION
  Report Type: Spontaneous
  Country: US (occurrence: US)
  Receive Date: 20140319
  Receipt Date: 20150616
  Transmission Date: 20150821
  Serious: Yes (Death, Hospitalization, Disabling, Other)
  Sender: FDA-Public Use
  Company Number: US-SANOFI-AVENTIS-2012SA003250

PATIENT
  Age: 73 Year
  Sex: Female

DRUGS (12)
  1. FLUOXETINE [Concomitant]
     Active Substance: FLUOXETINE\FLUOXETINE HYDROCHLORIDE
  2. LOVASTATIN. [Concomitant]
     Active Substance: LOVASTATIN
  3. PROZAC [Concomitant]
     Active Substance: FLUOXETINE HYDROCHLORIDE
  4. OMEPRAZOLE. [Concomitant]
     Active Substance: OMEPRAZOLE
  5. PLAVIX [Suspect]
     Active Substance: CLOPIDOGREL BISULFATE
     Indication: MYOCARDIAL INFARCTION
     Route: 048
     Dates: start: 20070407, end: 20100816
  6. PLAVIX [Suspect]
     Active Substance: CLOPIDOGREL BISULFATE
     Indication: STENT PLACEMENT
     Route: 048
     Dates: start: 20070407, end: 20100816
  7. ASPIRIN. [Concomitant]
     Active Substance: ASPIRIN
  8. SOTALOL. [Concomitant]
     Active Substance: SOTALOL
     Dosage: DOSE: 40 (UNITS UNSPECIFIED)
  9. ZETIA [Concomitant]
     Active Substance: EZETIMIBE
     Indication: HYPERLIPIDAEMIA
  10. HYDROCHLOROTHIAZIDE. [Concomitant]
     Active Substance: HYDROCHLOROTHIAZIDE
  11. PLAVIX [Suspect]
     Active Substance: CLOPIDOGREL BISULFATE
     Indication: ACUTE CORONARY SYNDROME
     Route: 048
     Dates: start: 20070407, end: 20100816
  12. COUMADIN [Concomitant]
     Active Substance: WARFARIN SODIUM

REACTIONS (14)
  - Cerebral haemorrhage [Unknown]
  - Physical disability [Not Recovered/Not Resolved]
  - Multiple injuries [Not Recovered/Not Resolved]
  - Pain [Not Recovered/Not Resolved]
  - Economic problem [Not Recovered/Not Resolved]
  - Death [Fatal]
  - Haemorrhagic stroke [Not Recovered/Not Resolved]
  - Deformity [Not Recovered/Not Resolved]
  - Loss of employment [Not Recovered/Not Resolved]
  - Psychological trauma [Not Recovered/Not Resolved]
  - Gastric haemorrhage [Unknown]
  - Tension [Not Recovered/Not Resolved]
  - Anhedonia [Not Recovered/Not Resolved]
  - Social problem [Not Recovered/Not Resolved]

NARRATIVE: CASE EVENT DATE: 200809
